FAERS Safety Report 14855817 (Version 2)
Quarter: 2018Q2

REPORT INFORMATION
  Report Type: Spontaneous
  Country: TR (occurrence: TR)
  Receive Date: 20180507
  Receipt Date: 20180614
  Transmission Date: 20180711
  Serious: Yes (Hospitalization)
  Sender: FDA-Public Use
  Company Number: TR-PFIZER INC-2018187413

PATIENT
  Age: 32 Year
  Sex: Female

DRUGS (5)
  1. RISPERDAL CONSTA [Concomitant]
     Active Substance: RISPERIDONE
     Indication: MAJOR DEPRESSION
     Dosage: 50 MG, DAILY
     Route: 030
     Dates: start: 20180322, end: 20180401
  2. RISPERDAL [Suspect]
     Active Substance: RISPERIDONE
     Indication: MAJOR DEPRESSION
     Dosage: 1 MG, DAILY
     Route: 048
     Dates: start: 20180320, end: 20180401
  3. ABILIFY [Concomitant]
     Active Substance: ARIPIPRAZOLE
     Indication: MAJOR DEPRESSION
     Dosage: 5 MG, DAILY
     Route: 048
     Dates: start: 20180329, end: 20180401
  4. LUSTRAL [Suspect]
     Active Substance: SERTRALINE HYDROCHLORIDE
     Indication: MAJOR DEPRESSION
     Dosage: 75 MG, DAILY
     Route: 048
     Dates: start: 20180322, end: 20180401
  5. LAMICTAL [Suspect]
     Active Substance: LAMOTRIGINE
     Indication: MAJOR DEPRESSION
     Dosage: 200 MG, DAILY
     Route: 048
     Dates: start: 20180215, end: 20180401

REACTIONS (4)
  - Eosinophil percentage increased [Not Recovered/Not Resolved]
  - Liver function test abnormal [Not Recovered/Not Resolved]
  - White blood cell count decreased [Not Recovered/Not Resolved]
  - Rash erythematous [Not Recovered/Not Resolved]

NARRATIVE: CASE EVENT DATE: 20180331
